FAERS Safety Report 11502031 (Version 3)
Quarter: 2015Q4

REPORT INFORMATION
  Report Type: Spontaneous
  Country: DE (occurrence: DE)
  Receive Date: 20150914
  Receipt Date: 20151013
  Transmission Date: 20160304
  Serious: Yes (Other)
  Sender: FDA-Public Use
  Company Number: DE-BAXTER-2015BAX049285

PATIENT
  Sex: Male

DRUGS (2)
  1. TISSEEL [Suspect]
     Active Substance: FIBRINOGEN HUMAN\THROMBIN HUMAN
     Dosage: 3 ADMINISTRATIONS
     Route: 065
  2. TISSEEL [Suspect]
     Active Substance: FIBRINOGEN HUMAN\THROMBIN HUMAN
     Indication: ENDOCRINE GLAND OPERATION
     Dosage: 3 ADMINISTRATIONS
     Route: 065

REACTIONS (1)
  - Drug ineffective [Unknown]
